FAERS Safety Report 5649074-0 (Version None)
Quarter: 2008Q1

REPORT INFORMATION
  Report Type: 
  Country: None (occurrence: None)
  Receive Date: 20080304
  Receipt Date: 20080303
  Transmission Date: 20080703
  Serious: No
  Sender: FDA-Public Use
  Company Number: US-BAXTER-2008BH001695

PATIENT
  Age: 83 Year
  Sex: Male
  Weight: 71 kg

DRUGS (6)
  1. HEPARIN SODIUM [Suspect]
     Indication: AORTIC ANEURYSM REPAIR
     Route: 040
     Dates: start: 20080225, end: 20080225
  2. HEPARIN SODIUM [Suspect]
     Route: 065
     Dates: start: 20080225, end: 20080225
  3. BICALUTAMIDE [Concomitant]
     Indication: DRUG USE FOR UNKNOWN INDICATION
     Dosage: DOSE UNIT:UNKNOWN
     Route: 065
  4. GOSERELIN [Concomitant]
     Indication: DRUG USE FOR UNKNOWN INDICATION
     Dosage: DOSE UNIT:UNKNOWN
     Route: 065
  5. LISINOPRIL [Concomitant]
     Indication: DRUG USE FOR UNKNOWN INDICATION
     Dosage: DOSE UNIT:UNKNOWN
     Route: 065
  6. SODIUM CHLORIDE 0.9% [Concomitant]
     Indication: AORTIC ANEURYSM REPAIR
     Route: 065
     Dates: start: 20080225

REACTIONS (3)
  - DRUG INEFFECTIVE [None]
  - HAEMORRHAGE [None]
  - PROTHROMBIN TIME PROLONGED [None]
